FAERS Safety Report 7980314-9 (Version None)
Quarter: 2011Q4

REPORT INFORMATION
  Report Type: 
  Country: None (occurrence: None)
  Receive Date: 20111214
  Receipt Date: 20111205
  Transmission Date: 20120403
  Serious: Yes (Death, Other)
  Sender: FDA-Public Use
  Company Number: PHHY2011US108207

PATIENT
  Age: 76 Year
  Sex: Female

DRUGS (7)
  1. METOPROLOL TARTRATE [Suspect]
  2. CLONAZEPAM [Suspect]
  3. QUETIAPINE [Suspect]
  4. LOTENSIN [Suspect]
  5. COLCHICINE [Suspect]
  6. ISRADIPINE [Suspect]
  7. VALPROIC ACID [Suspect]

REACTIONS (1)
  - SUICIDAL IDEATION [None]
